FAERS Safety Report 8532451-8 (Version None)
Quarter: 2012Q3

REPORT INFORMATION
  Report Type: 
  Country: None (occurrence: None)
  Receive Date: 20120716
  Receipt Date: 20120716
  Transmission Date: 20120928
  Serious: Yes (Hospitalization)
  Sender: FDA-Public Use
  Company Number: None

PATIENT
  Age: 78 Year
  Sex: Male
  Weight: 72.5755 kg

DRUGS (1)
  1. LEVAQUIN [Suspect]
     Indication: BRONCHITIS
     Dosage: 2 PER DAY
     Dates: start: 20120321, end: 20120323

REACTIONS (6)
  - SURGICAL PROCEDURE REPEATED [None]
  - IMPAIRED HEALING [None]
  - POST PROCEDURAL INFECTION [None]
  - TENDON RUPTURE [None]
  - PAIN IN EXTREMITY [None]
  - HYPOAESTHESIA [None]
